FAERS Safety Report 7763894-8 (Version None)
Quarter: 2011Q3

REPORT INFORMATION
  Report Type: 
  Country: None (occurrence: None)
  Receive Date: 20110921
  Receipt Date: 20110907
  Transmission Date: 20111222
  Serious: Yes (Hospitalization)
  Sender: FDA-Public Use
  Company Number: FR-JNJFOC-20110907054

PATIENT
  Sex: Female

DRUGS (5)
  1. ACETAMINOPHEN AND TRAMADOL HCL [Suspect]
     Indication: PRODUCT USED FOR UNKNOWN INDICATION
     Dosage: 37.5/325 MG, ONCE
     Route: 048
     Dates: start: 20110717, end: 20110717
  2. DILTIAZEM HCL [Concomitant]
     Route: 065
  3. NITRODERM [Concomitant]
     Route: 065
  4. BUMETANIDE [Concomitant]
     Route: 065
  5. SERETIDE [Concomitant]
     Route: 065
     Dates: end: 20110720

REACTIONS (5)
  - NAUSEA [None]
  - MEMORY IMPAIRMENT [None]
  - CONFUSIONAL STATE [None]
  - VOMITING [None]
  - DYSPNOEA [None]
